FAERS Safety Report 24461726 (Version 1)
Quarter: 2024Q4

REPORT INFORMATION
  Report Type: Spontaneous
  Country: US (occurrence: None)
  Receive Date: 20241018
  Receipt Date: 20241018
  Transmission Date: 20250114
  Serious: No
  Sender: Public
  Company Number: None

PATIENT
  Age: 48 Year
  Sex: Female
  Weight: 51.3 kg

DRUGS (3)
  1. NEULUMEX [Suspect]
     Active Substance: BARIUM SULFATE
     Indication: Computerised tomogram
     Route: 048
     Dates: start: 20241017, end: 20241017
  2. ZOLOFT [Concomitant]
     Active Substance: SERTRALINE HYDROCHLORIDE
  3. Multi vitamin [Concomitant]

REACTIONS (4)
  - Abdominal pain [None]
  - Abdominal distension [None]
  - Muscle spasms [None]
  - Diarrhoea [None]

NARRATIVE: CASE EVENT DATE: 20241017
